FAERS Safety Report 8941831 (Version 1)
Quarter: 2012Q4

REPORT INFORMATION
  Report Type: 
  Country: FR (occurrence: FR)
  Receive Date: 20121203
  Receipt Date: 20121203
  Transmission Date: 20130627
  Serious: Yes (Death, Other)
  Sender: FDA-Public Use
  Company Number: PHHY2012FR110485

PATIENT
  Age: 15 Year
  Sex: Male

DRUGS (7)
  1. DOXORUBICIN [Suspect]
     Indication: BURKITT^S LYMPHOMA STAGE IV
  2. PREDNISOLONE SANDOZ [Suspect]
     Indication: BURKITT^S LYMPHOMA STAGE IV
  3. METHOTREXATE [Suspect]
     Indication: BURKITT^S LYMPHOMA STAGE IV
  4. CYTARABINE [Suspect]
     Indication: BURKITT^S LYMPHOMA STAGE IV
  5. ETOPOSIDE [Suspect]
     Indication: BURKITT^S LYMPHOMA STAGE IV
  6. ONCOVIN [Suspect]
     Indication: BURKITT^S LYMPHOMA STAGE IV
  7. CYCLOPHOSPHAMIDE [Suspect]
     Indication: BURKITT^S LYMPHOMA STAGE IV

REACTIONS (3)
  - Complications of bone marrow transplant [Fatal]
  - Cystitis haemorrhagic [Unknown]
  - Neutropenia [Unknown]
